FAERS Safety Report 18294238 (Version 1)
Quarter: 2020Q3

REPORT INFORMATION
  Report Type: Spontaneous
  Country: US (occurrence: US)
  Receive Date: 20200922
  Receipt Date: 20200922
  Transmission Date: 20201103
  Serious: Yes (Other)
  Sender: FDA-Public Use
  Company Number: PHHY2018US157903

PATIENT
  Age: 23 Year
  Sex: Female

DRUGS (2)
  1. TRIAMCINOLONE ACETONIDE. [Suspect]
     Active Substance: TRIAMCINOLONE ACETONIDE
     Indication: ARTHRALGIA
     Dosage: EXTRA?ARTICULAR SOFT TISSUE INJECTION
     Route: 050
  2. DICLOFENAC [Suspect]
     Active Substance: DICLOFENAC
     Indication: INFLAMMATION
     Dosage: UNK
     Route: 061

REACTIONS (16)
  - Drug ineffective [Unknown]
  - Arthralgia [Recovered/Resolved]
  - Asthenia [Recovered/Resolved]
  - Muscular weakness [Recovered/Resolved]
  - Decreased activity [Recovered/Resolved]
  - Injection site discolouration [Recovering/Resolving]
  - Bursitis [Recovered/Resolved]
  - Skin atrophy [Recovered/Resolved]
  - Injection site pain [Recovered/Resolved]
  - Allodynia [Recovered/Resolved]
  - Skin depigmentation [Recovered/Resolved]
  - Pain [Recovered/Resolved]
  - Injection site indentation [Recovering/Resolving]
  - Soft tissue atrophy [Recovered/Resolved]
  - Joint effusion [Recovered/Resolved]
  - Arthropathy [Recovered/Resolved]
